FAERS Safety Report 6229333-3 (Version None)
Quarter: 2009Q2

REPORT INFORMATION
  Report Type: 
  Country: None (occurrence: None)
  Receive Date: 20090615
  Receipt Date: 20090603
  Transmission Date: 20091009
  Serious: Yes (Hospitalization, Other)
  Sender: FDA-Public Use
  Company Number: FR-CELGENEUS-056-21880-09010647

PATIENT
  Sex: Female
  Weight: 58 kg

DRUGS (2)
  1. REVLIMID [Suspect]
     Indication: MYELODYSPLASTIC SYNDROME
     Route: 048
     Dates: start: 20081128, end: 20081213
  2. PREVISCAN [Concomitant]
     Dosage: 3/4 AND 1/2 TABLET
     Route: 048

REACTIONS (3)
  - ANAEMIA [None]
  - ERYSIPELAS [None]
  - NEUTROPENIA [None]
